FAERS Safety Report 25037787 (Version 1)
Quarter: 2025Q1

REPORT INFORMATION
  Report Type: Other
  Country: CN (occurrence: CN)
  Receive Date: 20250304
  Receipt Date: 20250304
  Transmission Date: 20250408
  Serious: Yes (Hospitalization, Other)
  Sender: Kanchan Healthcare
  Company Number: CN-Kanchan Healthcare INC-2172194

PATIENT
  Age: 71 Year
  Sex: Male

DRUGS (9)
  1. CYCLOPHOSPHAMIDE [Suspect]
     Active Substance: CYCLOPHOSPHAMIDE
     Indication: Myasthenia gravis
  2. TACROLIMUS [Suspect]
     Active Substance: TACROLIMUS
  3. SODIUM CHLORIDE [Concomitant]
     Active Substance: SODIUM CHLORIDE
  4. PYRIDOSTIGMINE BROMIDE [Concomitant]
     Active Substance: PYRIDOSTIGMINE BROMIDE
  5. REPAGLINIDE [Concomitant]
     Active Substance: REPAGLINIDE
  6. METOPROLOL TARTRATE [Concomitant]
     Active Substance: METOPROLOL TARTRATE
  7. ISOSORBIDE DINITRATE [Concomitant]
     Active Substance: ISOSORBIDE DINITRATE
  8. ASPIRIN [Concomitant]
     Active Substance: ASPIRIN
  9. METHYLPREDNISOLONE [Suspect]
     Active Substance: METHYLPREDNISOLONE

REACTIONS (2)
  - Pulmonary nocardiosis [Recovered/Resolved]
  - Product use in unapproved indication [Unknown]
